FAERS Safety Report 4957465-6 (Version None)
Quarter: 2006Q1

REPORT INFORMATION
  Report Type: 
  Country: None (occurrence: None)
  Receive Date: 20060330
  Receipt Date: 20060322
  Transmission Date: 20060701
  Serious: Yes (Hospitalization, Other)
  Sender: FDA-Public Use
  Company Number: GB-JNJFOC-20060305664

PATIENT
  Sex: Female
  Weight: 65 kg

DRUGS (9)
  1. REMICADE [Suspect]
     Indication: RHEUMATOID ARTHRITIS
     Route: 042
  2. METHOTREXATE [Concomitant]
     Route: 065
  3. PREDNISOLONE [Concomitant]
     Route: 065
  4. CO-CODAMOL [Concomitant]
     Route: 065
  5. CO-CODAMOL [Concomitant]
     Route: 065
  6. FOSAMAX [Concomitant]
     Route: 065
  7. MELOXICAM [Concomitant]
     Route: 065
  8. RANITIDINE [Concomitant]
     Route: 065
  9. FOLIC ACID [Concomitant]
     Route: 065

REACTIONS (2)
  - COLPOSUSPENSION [None]
  - PROLAPSE REPAIR [None]
